FAERS Safety Report 19767875 (Version 1)
Quarter: 2021Q3

REPORT INFORMATION
  Report Type: Spontaneous
  Country: FR (occurrence: FR)
  Receive Date: 20210830
  Receipt Date: 20210830
  Transmission Date: 20211014
  Serious: Yes (Other)
  Sender: FDA-Public Use
  Company Number: FR-US-PROVELL PHARMACEUTICALS LLC-9259357

PATIENT
  Sex: Male

DRUGS (6)
  1. LEVOTHYROX [Suspect]
     Active Substance: LEVOTHYROXINE
     Dates: start: 20210709
  2. LEVOTHYROX [Suspect]
     Active Substance: LEVOTHYROXINE
     Dates: start: 20210806
  3. LEVOTHYROX [Suspect]
     Active Substance: LEVOTHYROXINE
  4. LEVOTHYROX [Suspect]
     Active Substance: LEVOTHYROXINE
     Indication: POST PROCEDURAL HYPOTHYROIDISM
  5. LEVOTHYROX [Suspect]
     Active Substance: LEVOTHYROXINE
     Dates: start: 20210723
  6. NIVOLUMAB [Concomitant]
     Active Substance: NIVOLUMAB
     Indication: PRODUCT USED FOR UNKNOWN INDICATION
     Dosage: 1 INJECTION EVERY 15 DAYS

REACTIONS (4)
  - Wrong technique in product usage process [Unknown]
  - Throat cancer [Unknown]
  - Blood thyroid stimulating hormone increased [Unknown]
  - Neoplasm recurrence [Unknown]
